FAERS Safety Report 21500783 (Version 2)
Quarter: 2022Q4

REPORT INFORMATION
  Report Type: Other
  Country: US (occurrence: None)
  Receive Date: 20221025
  Receipt Date: 20221027
  Transmission Date: 20230112
  Serious: Yes (Death)
  Sender: FDA-Public Use
  Company Number: US-ROCHE-3205663

PATIENT
  Age: 70 Year
  Sex: Female

DRUGS (1)
  1. XELODA [Suspect]
     Active Substance: CAPECITABINE
     Indication: Breast cancer female
     Dosage: TAKE 4 TABLET(S) BY MOUTH EVERY MORNING + TAKE 3 TABLET(S) BY MOUTH EVERY EVENING FOR 2WEEK(S) ON, 1
     Route: 048

REACTIONS (1)
  - Death [Fatal]

NARRATIVE: CASE EVENT DATE: 20221017
